FAERS Safety Report 9379192 (Version 1)
Quarter: 2013Q3

REPORT INFORMATION
  Report Type: Not Available
  Country: DK (occurrence: DK)
  Receive Date: 20130702
  Receipt Date: 20130702
  Transmission Date: 20140515
  Serious: Yes (Other)
  Sender: FDA-Public Use
  Company Number: DK-ASTELLAS-2013EU005467

PATIENT
  Age: 78 Year
  Sex: Male
  Weight: 86 kg

DRUGS (11)
  1. VESICARE [Suspect]
     Indication: DYSURIA
     Dosage: 10 MG, UNKNOWN/D
     Route: 048
     Dates: start: 20130524, end: 20130527
  2. SOLIFENACIN SUCCINATE [Concomitant]
     Indication: HYPERTENSION
     Dosage: 15 MG, UID/QD
     Route: 065
  3. AMLODIPIN [Concomitant]
     Dosage: 1 UNK, UNKNOWN/D
     Route: 065
  4. ANARTAN COMP. [Concomitant]
     Indication: HYPERTENSION
     Dosage: STYRKE: 100+125 MG
     Route: 065
  5. CARVEDILOL [Concomitant]
     Indication: HYPERTENSION
     Route: 065
  6. DIURAL [Concomitant]
     Indication: DIURETIC THERAPY
     Dosage: 40 MG, UNKNOWN/D
     Route: 065
  7. HEXANURAT [Concomitant]
     Dosage: STYRKE: 100 MG
     Route: 065
  8. GLICLAZID ^KRKA^ [Concomitant]
     Indication: TYPE 2 DIABETES MELLITUS
     Dosage: STYRKE: 30 MG
     Route: 065
  9. IBUMETIN [Concomitant]
     Indication: ARTHRITIS
     Route: 065
  10. KALEORID [Concomitant]
     Dosage: 750 MG, UID/QD
     Route: 065
  11. MAREVAN [Concomitant]
     Indication: ANTICOAGULANT THERAPY
     Dosage: 7.5 MG, UID/QD
     Route: 065

REACTIONS (2)
  - Urinary retention [Not Recovered/Not Resolved]
  - Bladder catheterisation [Not Recovered/Not Resolved]
